FAERS Safety Report 5424558-9 (Version None)
Quarter: 2007Q3

REPORT INFORMATION
  Report Type: 
  Country: None (occurrence: None)
  Receive Date: 20070726
  Receipt Date: 20070406
  Transmission Date: 20080115
  Serious: No
  Sender: FDA-Public Use
  Company Number: POMP-11017

PATIENT
  Age: 52 Year
  Sex: Female
  Weight: 60.782 kg

DRUGS (3)
  1. MYOZYME [Suspect]
     Indication: GLYCOGEN STORAGE DISEASE TYPE II
     Dosage: 1250 MG Q2WKS IV
     Route: 042
     Dates: start: 20060501
  2. EPHEDRINE [Concomitant]
  3. L-ALANINE [Concomitant]

REACTIONS (1)
  - VISUAL DISTURBANCE [None]
